FAERS Safety Report 24780617 (Version 1)
Quarter: 2024Q4

REPORT INFORMATION
  Report Type: Spontaneous
  Country: DE (occurrence: DE)
  Receive Date: 20241227
  Receipt Date: 20241227
  Transmission Date: 20250115
  Serious: Yes (Other)
  Sender: AMGEN
  Company Number: DE-AMGEN-DEUSP2024252408

PATIENT
  Age: 67 Year
  Sex: Female

DRUGS (6)
  1. PREDNISONE [Suspect]
     Active Substance: PREDNISONE
     Indication: Splenic infarction
     Dosage: UNK
     Route: 065
  2. PREDNISONE [Suspect]
     Active Substance: PREDNISONE
     Indication: Cerebrovascular accident
     Dosage: UNK, TAPER
     Route: 065
  3. PREDNISONE [Suspect]
     Active Substance: PREDNISONE
     Indication: Myocarditis
  4. PEMBROLIZUMAB [Concomitant]
     Active Substance: PEMBROLIZUMAB
     Indication: Endometrial adenocarcinoma
     Dosage: 200 MILLIGRAM, NINE 3-WEEKLY CYCLES
     Route: 065
     Dates: start: 202203
  5. PEMBROLIZUMAB [Concomitant]
     Active Substance: PEMBROLIZUMAB
     Dosage: 400 MILLIGRAM,THREE 6-WEEKLY CYCLES
     Route: 065
     Dates: end: 202212
  6. PEMBROLIZUMAB [Concomitant]
     Active Substance: PEMBROLIZUMAB
     Dosage: UNK
     Route: 065

REACTIONS (10)
  - Splenic infarction [Recovered/Resolved]
  - Cerebrovascular accident [Recovered/Resolved]
  - Myocarditis [Recovered/Resolved]
  - Thrombocytosis [Recovered/Resolved]
  - Inflammatory marker increased [Recovered/Resolved]
  - Palpitations [Recovered/Resolved]
  - Troponin increased [Recovered/Resolved]
  - Systolic dysfunction [Recovered/Resolved]
  - Brain natriuretic peptide increased [Recovered/Resolved]
  - Off label use [Unknown]
